FAERS Safety Report 8831948 (Version 3)
Quarter: 2012Q4

REPORT INFORMATION
  Report Type: Report from Study
  Country: US (occurrence: US)
  Receive Date: 20121009
  Receipt Date: 20121030
  Transmission Date: 20130627
  Serious: Yes (Hospitalization)
  Sender: FDA-Public Use
  Company Number: US-PFIZER INC-2012246570

PATIENT
  Age: 48 Year
  Sex: Male
  Weight: 146 kg

DRUGS (16)
  1. NEURONTIN [Suspect]
     Indication: BACK PAIN
     Dosage: UNK
     Route: 048
     Dates: end: 20110810
  2. NEURONTIN [Suspect]
     Indication: NECK PAIN
  3. LYRICA [Suspect]
     Indication: BACK PAIN
     Dosage: 75 mg, daily
     Route: 048
     Dates: start: 201106, end: 20110810
  4. LYRICA [Suspect]
     Indication: NECK PAIN
  5. DULOXETINE HYDROCHLORIDE [Suspect]
     Indication: BACK PAIN
     Dosage: 30 mg, daily
     Route: 048
     Dates: start: 201106, end: 20110810
  6. DULOXETINE HYDROCHLORIDE [Suspect]
     Indication: NECK PAIN
  7. TAXUS LIBERTE PACLITAXEL-ELUTING CORONARY STENT [Suspect]
     Indication: ACUTE CORONARY SYNDROME
     Dosage: UNK
     Dates: start: 20110303
  8. PRASUGREL [Suspect]
     Dosage: UNK
     Route: 048
  9. ACETYLSALICYLIC ACID [Concomitant]
     Dosage: UNK
     Dates: start: 20110304
  10. COREG [Concomitant]
     Dosage: UNK
  11. GLIBURIDE/METFORMIN HYDROCHLORIDE [Concomitant]
     Dosage: UNK
  12. ZOCOR [Concomitant]
     Dosage: UNK
  13. LANTUS [Concomitant]
     Dosage: UNK
  14. HUMALOG [Concomitant]
     Dosage: UNK
  15. LISINOPRIL [Concomitant]
     Dosage: UNK
  16. PROTONIX [Concomitant]
     Dosage: UNK

REACTIONS (1)
  - Mental status changes [Recovered/Resolved]
